FAERS Safety Report 9928547 (Version 1)
Quarter: 2014Q1

REPORT INFORMATION
  Report Type: Report from Study
  Country: US (occurrence: US)
  Receive Date: 20140227
  Receipt Date: 20140227
  Transmission Date: 20141002
  Serious: Yes (Other)
  Sender: FDA-Public Use
  Company Number: US-ROCHE-1335632

PATIENT
  Sex: Female

DRUGS (5)
  1. LUCENTIS [Suspect]
     Indication: DIABETIC RETINOPATHY
     Route: 050
  2. LUCENTIS [Suspect]
     Indication: DIABETIC RETINAL OEDEMA
  3. AVASTIN [Suspect]
     Indication: DIABETIC RETINOPATHY
     Route: 042
  4. AVASTIN [Suspect]
     Indication: DIABETIC RETINAL OEDEMA
  5. BRIMONIDINE [Concomitant]
     Dosage: OS (LEFT EYE)
     Route: 065

REACTIONS (4)
  - Retinal oedema [Unknown]
  - Visual impairment [Unknown]
  - Dry eye [Unknown]
  - Retinal haemorrhage [Unknown]
